FAERS Safety Report 14347488 (Version 1)
Quarter: 2018Q1

REPORT INFORMATION
  Report Type: Spontaneous
  Country: US (occurrence: US)
  Receive Date: 20180103
  Receipt Date: 20180103
  Transmission Date: 20180509
  Serious: No
  Sender: FDA-Public Use
  Company Number: US-PFIZER INC-2017554127

PATIENT
  Age: 40 Year
  Sex: Female

DRUGS (3)
  1. OLANZAPINE. [Concomitant]
     Active Substance: OLANZAPINE
     Indication: BIPOLAR DISORDER
     Dosage: 10 MG, UNK
  2. CHANTIX [Suspect]
     Active Substance: VARENICLINE TARTRATE
     Indication: SMOKING CESSATION THERAPY
     Dosage: 1 MG, TWICE A DAY
     Route: 048
     Dates: start: 20170116, end: 20170914
  3. OLANZAPINE. [Concomitant]
     Active Substance: OLANZAPINE
     Dosage: 5 MG, 1X/DAY (QHS)
     Dates: start: 20170821

REACTIONS (2)
  - Mania [Recovered/Resolved]
  - Mood altered [Recovered/Resolved]

NARRATIVE: CASE EVENT DATE: 20170914
